FAERS Safety Report 6836733-7 (Version None)
Quarter: 2010Q3

REPORT INFORMATION
  Report Type: 
  Country: None (occurrence: None)
  Receive Date: 20100713
  Receipt Date: 20100629
  Transmission Date: 20110219
  Serious: Yes (Hospitalization)
  Sender: FDA-Public Use
  Company Number: US-MYLANLABS-2010S1011619

PATIENT
  Age: 50 Year
  Sex: Male

DRUGS (2)
  1. SALBUTAMOL SULFATE [Suspect]
     Indication: STATUS ASTHMATICUS
     Dosage: INHALER
     Route: 055
  2. SALBUTAMOL SULFATE [Suspect]
     Dosage: IN NEBULISER
     Route: 055

REACTIONS (2)
  - INCORRECT DOSE ADMINISTERED [None]
  - STRESS CARDIOMYOPATHY [None]
